FAERS Safety Report 4690785-1 (Version None)
Quarter: 2005Q2

REPORT INFORMATION
  Report Type: 
  Country: None (occurrence: None)
  Receive Date: 20050615
  Receipt Date: 20050428
  Transmission Date: 20051028
  Serious: Yes (Other)
  Sender: FDA-Public Use
  Company Number: IT-JNJFOC-20050406726

PATIENT
  Age: 27 Year
  Sex: Male

DRUGS (3)
  1. IBUPROFEN [Suspect]
  2. IBUPROFEN [Suspect]
  3. RISPERIDONE [Concomitant]

REACTIONS (10)
  - AGITATION [None]
  - CONDITION AGGRAVATED [None]
  - DELUSION OF GRANDEUR [None]
  - DISTURBANCE IN ATTENTION [None]
  - FATIGUE [None]
  - FLIGHT OF IDEAS [None]
  - INSOMNIA [None]
  - PARANOIA [None]
  - PRESSURE OF SPEECH [None]
  - PSYCHOTIC DISORDER [None]
